FAERS Safety Report 9560869 (Version 1)
Quarter: 2013Q3

REPORT INFORMATION
  Report Type: Spontaneous
  Country: JP (occurrence: JP)
  Receive Date: 20130927
  Receipt Date: 20130927
  Transmission Date: 20140515
  Serious: Yes (Hospitalization)
  Sender: FDA-Public Use
  Company Number: JP-BAYER-2013-114015

PATIENT
  Age: 80 Year
  Sex: Male

DRUGS (5)
  1. ACETYLSALICYLIC ACID({=100 MG) [Suspect]
     Indication: ANGINA UNSTABLE
     Dosage: UNK
     Route: 048
  2. CLOPIDOGREL SULFATE [Interacting]
     Dosage: UNK
     Route: 048
  3. WARFARIN [Interacting]
     Dosage: UNK
     Route: 048
  4. NITOROL [Concomitant]
     Indication: COMPUTERISED TOMOGRAM CORONARY ARTERY
     Dosage: UNK
  5. CALCIUM CHANNEL BLOCKERS [Concomitant]
     Dosage: UNK
     Dates: start: 20130503

REACTIONS (4)
  - Gastrointestinal haemorrhage [None]
  - Anaemia [None]
  - Labelled drug-drug interaction medication error [None]
  - Myocardial infarction [None]
